FAERS Safety Report 13836284 (Version 2)
Quarter: 2017Q3

REPORT INFORMATION
  Report Type: Spontaneous
  Country: US (occurrence: US)
  Receive Date: 20170804
  Receipt Date: 20170823
  Transmission Date: 20171127
  Serious: No
  Sender: FDA-Public Use
  Company Number: GXBR2017US002134

PATIENT
  Age: 44 Year
  Sex: Female
  Weight: 70.75 kg

DRUGS (3)
  1. ALPRAZOLAM TABLETS USP [Suspect]
     Active Substance: ALPRAZOLAM
     Indication: ARRHYTHMIA
     Dosage: UNK, BID
     Route: 048
     Dates: start: 20170609, end: 20170624
  2. DIPHENHYDRAMINE. [Concomitant]
     Active Substance: DIPHENHYDRAMINE
     Indication: PRURITUS
     Route: 065
  3. NAPROXEN. [Concomitant]
     Active Substance: NAPROXEN
     Indication: DYSMENORRHOEA
     Route: 065

REACTIONS (5)
  - Abnormal loss of weight [Unknown]
  - Chest discomfort [Unknown]
  - Drug prescribing error [Unknown]
  - Product use in unapproved indication [Unknown]
  - Muscle strain [Unknown]

NARRATIVE: CASE EVENT DATE: 20170609
